FAERS Safety Report 7382499 (Version 11)
Quarter: 2012Q4

REPORT INFORMATION
  Report Type: 
  Country: JP (occurrence: JP)
  Receive Date: 20100510
  Receipt Date: 20120916
  Transmission Date: 20130627
  Serious: Yes (Hospitalization, Other)
  Sender: FDA-Public Use
  Company Number: PHHY2010JP27099

PATIENT
  Age: 61 Year
  Sex: Female

DRUGS (11)
  1. ZOMETA [Suspect]
     Indication: METASTASES TO BONE
     Dosage: 4 mg, once a month
     Route: 041
     Dates: start: 20070609, end: 20100426
  2. FARMORUBICIN [Concomitant]
     Indication: POSTOPERATIVE CARE
     Route: 042
     Dates: start: 200510
  3. ENDOXAN [Concomitant]
     Indication: POSTOPERATIVE CARE
     Route: 042
     Dates: start: 200510
  4. TAXOTERE [Concomitant]
     Indication: POSTOPERATIVE CARE
     Route: 042
     Dates: start: 200601
  5. HYSRON [Concomitant]
     Indication: TUMOUR MARKER INCREASED
     Dosage: 600 mg, UNK
     Route: 048
     Dates: start: 20070609, end: 20080811
  6. NOLVADEX [Concomitant]
     Indication: METASTASES TO LYMPH NODES
     Dosage: 20 mg, UNK
     Route: 048
     Dates: start: 20080812, end: 20081006
  7. XELODA [Concomitant]
     Indication: TUMOUR MARKER INCREASED
     Dosage: 2400 mg, UNK
     Route: 048
     Dates: start: 20081006
  8. FEMARA [Concomitant]
     Indication: POSTOPERATIVE CARE
     Dosage: 2.5 mg, UNK
     Route: 048
     Dates: start: 20060808, end: 20070608
  9. AROMASIN [Concomitant]
     Indication: BREAST CANCER RECURRENT
     Dates: start: 200403, end: 200511
  10. CORTICOSTEROID NOS [Concomitant]
  11. PROTON PUMP INHIBITORS [Concomitant]

REACTIONS (11)
  - Femur fracture [Unknown]
  - Pain in extremity [Recovered/Resolved]
  - Bone callus excessive [Recovered/Resolved]
  - Bone fragmentation [Unknown]
  - Bone pain [Unknown]
  - Bone disorder [Unknown]
  - Osteonecrosis of jaw [Not Recovered/Not Resolved]
  - Metastases to lymph nodes [Unknown]
  - Tumour marker increased [Unknown]
  - Injury [Unknown]
  - Fatigue [Unknown]
